FAERS Safety Report 5597504-5 (Version None)
Quarter: 2008Q1

REPORT INFORMATION
  Report Type: 
  Country: None (occurrence: None)
  Receive Date: 20080116
  Receipt Date: 20080107
  Transmission Date: 20080703
  Serious: Yes (Hospitalization)
  Sender: FDA-Public Use
  Company Number: 2007BI015097

PATIENT
  Age: 51 Year
  Sex: Female
  Weight: 56.246 kg

DRUGS (2)
  1. TYSABRI [Suspect]
     Indication: MULTIPLE SCLEROSIS
     Dosage: 300 MG QW IV
     Route: 042
     Dates: start: 20061221
  2. KEPPRA [Concomitant]

REACTIONS (8)
  - ABDOMINAL DISTENSION [None]
  - ABSCESS [None]
  - DEEP VEIN THROMBOSIS [None]
  - KLEBSIELLA INFECTION [None]
  - NEPHROLITHIASIS [None]
  - NEUROGENIC BLADDER [None]
  - STAPHYLOCOCCAL INFECTION [None]
  - URINARY TRACT INFECTION [None]
